FAERS Safety Report 9639458 (Version 7)
Quarter: 2014Q1

REPORT INFORMATION
  Report Type: Report from Study
  Country: CA (occurrence: CA)
  Receive Date: 20131022
  Receipt Date: 20140127
  Transmission Date: 20141002
  Serious: Yes (Hospitalization)
  Sender: FDA-Public Use
  Company Number: CA-ROCHE-1289232

PATIENT
  Age: 62 Year
  Sex: Female
  Weight: 59.3 kg

DRUGS (43)
  1. TRASTUZUMAB EMTANSINE [Suspect]
     Indication: HER-2 POSITIVE BREAST CANCER
     Dosage: DATE OF LAST DOSE (226.8MG) PRIOR TO CELLULTIS ONSET: 19/SEP/2013.
     Route: 042
     Dates: start: 20130830
  2. TRASTUZUMAB EMTANSINE [Suspect]
     Dosage: DATE OF LAST DOSE (208.8MG) PRIOR TO THORACIC CELLULTIS ONSET: 21/NOV/2013.
     Route: 042
     Dates: start: 20131031
  3. COREG CR [Concomitant]
     Route: 065
     Dates: start: 20100831
  4. LORAZEPAM [Concomitant]
     Indication: ANXIETY
     Route: 065
     Dates: start: 2005
  5. PROCHLORPERAZINE [Concomitant]
     Indication: NAUSEA
     Route: 065
     Dates: start: 20100528
  6. PROCHLORPERAZINE [Concomitant]
     Indication: PROPHYLAXIS
     Dosage: STEMETIL
     Route: 065
     Dates: start: 20131010
  7. STATEX (CANADA) [Concomitant]
     Indication: MUSCULOSKELETAL CHEST PAIN
     Route: 065
     Dates: start: 200910, end: 201305
  8. STATEX (CANADA) [Concomitant]
     Indication: CHEST PAIN
  9. STATEX (CANADA) [Concomitant]
     Indication: BREAST PAIN
  10. LOVENOX [Concomitant]
     Indication: PROPHYLAXIS
     Route: 065
     Dates: start: 20100617
  11. CETIRIZINE [Concomitant]
     Indication: HYPERSENSITIVITY
     Route: 065
     Dates: start: 2009
  12. ZOPICLONE [Concomitant]
     Indication: INSOMNIA
     Route: 065
     Dates: start: 200910
  13. ZOMETA [Concomitant]
     Indication: METASTASES TO BONE
     Route: 065
     Dates: start: 2001
  14. COLACE [Concomitant]
     Indication: CONSTIPATION
     Route: 065
     Dates: start: 200910
  15. CITALOPRAM [Concomitant]
     Indication: DEPRESSION
     Route: 065
     Dates: start: 20110901
  16. GAVISCON (ALGINIC ACID) [Concomitant]
     Indication: DYSPEPSIA
     Route: 065
     Dates: start: 20130810
  17. HYDROMORPHONE [Concomitant]
     Indication: BACK PAIN
     Route: 065
     Dates: start: 201305
  18. HYDROMORPHONE [Concomitant]
     Indication: CHEST PAIN
  19. EURO D [Concomitant]
     Route: 065
     Dates: start: 2010
  20. FLURAZEPAM [Concomitant]
     Indication: INSOMNIA
     Route: 065
     Dates: start: 2010
  21. FLURAZEPAM [Concomitant]
     Indication: ANXIETY
  22. DECADRON [Concomitant]
     Indication: HYPERSENSITIVITY
     Route: 065
     Dates: start: 20130830, end: 20131121
  23. DECADRON [Concomitant]
     Indication: PROPHYLAXIS
  24. ACETAMINOPHEN [Concomitant]
     Indication: PYREXIA
     Route: 065
     Dates: start: 20130902
  25. ACETAMINOPHEN [Concomitant]
     Indication: BONE PAIN
  26. NACL .9% [Concomitant]
     Indication: PYREXIA
     Route: 065
     Dates: start: 20131007, end: 20131007
  27. NACL .9% [Concomitant]
     Indication: DEHYDRATION
     Route: 065
     Dates: start: 20131010, end: 20131012
  28. ZOFRAN [Concomitant]
     Indication: NAUSEA
     Route: 065
     Dates: start: 20131008, end: 20131212
  29. CODEINE [Concomitant]
     Indication: COUGH
     Route: 065
     Dates: start: 20131011
  30. DILAUDID [Concomitant]
     Indication: PLEURITIC PAIN
     Route: 065
     Dates: start: 20131016, end: 20131106
  31. MOTILIUM (CANADA) [Concomitant]
     Indication: NAUSEA
     Route: 065
     Dates: start: 20131023, end: 20131024
  32. GRAVOL [Concomitant]
     Indication: NAUSEA
     Route: 065
     Dates: start: 20131023, end: 20131023
  33. METRONIDAZOLE [Concomitant]
     Dosage: 1 APPLICATION
     Route: 065
     Dates: start: 20131028, end: 20131103
  34. NABILONE [Concomitant]
     Indication: NAUSEA
     Route: 065
     Dates: start: 20131031, end: 20131105
  35. PANTOLOC [Concomitant]
     Indication: DYSPEPSIA
     Route: 065
     Dates: start: 20131105, end: 20131210
  36. ANCEF (CANADA) [Concomitant]
     Route: 042
     Dates: start: 20131127, end: 20131128
  37. VENTOLIN [Concomitant]
     Indication: PROPHYLAXIS
     Route: 055
     Dates: start: 20131125, end: 20131212
  38. VENTOLIN [Concomitant]
     Indication: COUGH
  39. VENTOLIN [Concomitant]
     Indication: DYSPNOEA
  40. FLOVENT [Concomitant]
     Indication: PROPHYLAXIS
     Route: 065
     Dates: start: 20131125, end: 20131212
  41. FLOVENT [Concomitant]
     Indication: DYSPNOEA
  42. DURICEF [Concomitant]
     Indication: CELLULITIS
     Route: 065
     Dates: start: 20131128, end: 20131205
  43. DURICEF [Concomitant]
     Route: 065
     Dates: start: 20131206, end: 20131212

REACTIONS (1)
  - Cellulitis [Recovered/Resolved]
